FAERS Safety Report 13060577 (Version 2)
Quarter: 2017Q1

REPORT INFORMATION
  Report Type: Report from Study
  Country: JP (occurrence: JP)
  Receive Date: 20161224
  Receipt Date: 20170315
  Transmission Date: 20170428
  Serious: Yes (Other)
  Sender: FDA-Public Use
  Company Number: JP-AMGEN-JPNSP2016182408

PATIENT
  Age: 68 Year
  Sex: Male

DRUGS (1)
  1. CARFILZOMIB [Suspect]
     Active Substance: CARFILZOMIB
     Indication: PLASMA CELL MYELOMA
     Dosage: UNK
     Route: 041
     Dates: start: 2016, end: 2016

REACTIONS (2)
  - Cardiac failure congestive [Not Recovered/Not Resolved]
  - Testicular disorder [Not Recovered/Not Resolved]

NARRATIVE: CASE EVENT DATE: 2016
